FAERS Safety Report 15898806 (Version 2)
Quarter: 2019Q1

REPORT INFORMATION
  Report Type: Spontaneous
  Country: US (occurrence: US)
  Receive Date: 20190201
  Receipt Date: 20190201
  Transmission Date: 20190417
  Serious: Yes (Other)
  Sender: FDA-Public Use
  Company Number: US-CELGENEUS-USA-20190109105

PATIENT
  Sex: Female

DRUGS (1)
  1. OTEZLA [Suspect]
     Active Substance: APREMILAST
     Indication: PSORIASIS
     Dosage: 60 MILLIGRAM
     Route: 048
     Dates: start: 20170214

REACTIONS (6)
  - Urinary tract infection [Unknown]
  - Dysphagia [Unknown]
  - Dementia Alzheimer^s type [Unknown]
  - Decubitus ulcer [Unknown]
  - Erythema [Unknown]
  - Nasal congestion [Unknown]
